FAERS Safety Report 16513654 (Version 4)
Quarter: 2019Q3

REPORT INFORMATION
  Report Type: Report from Study
  Country: CA (occurrence: CA)
  Receive Date: 20190701
  Receipt Date: 20190923
  Transmission Date: 20191004
  Serious: Yes (Other)
  Sender: FDA-Public Use
  Company Number: CA-HLSUS-2018-CA-000095

PATIENT
  Age: 73 Year
  Sex: Female
  Weight: 69 kg

DRUGS (6)
  1. AMLODIPINE [Concomitant]
     Active Substance: AMLODIPINE BESYLATE
     Indication: HYPERTENSION
     Dosage: 2.5MG
     Route: 048
  2. FOLIC ACID. [Concomitant]
     Active Substance: FOLIC ACID
     Indication: NEUTROPENIA
     Dates: start: 20180731, end: 20181010
  3. LAX-A-DAY [Concomitant]
     Indication: CONSTIPATION
     Route: 048
  4. CALCIUM + VITAMINE D [Concomitant]
     Route: 048
  5. COLACE [Concomitant]
     Active Substance: DOCUSATE SODIUM
     Indication: CONSTIPATION
     Dosage: 100MG 2 CAPS BID
     Route: 048
  6. CLOZARIL [Suspect]
     Active Substance: CLOZAPINE
     Indication: SCHIZOPHRENIA
     Dosage: 400MG
     Route: 048
     Dates: start: 19981009

REACTIONS (8)
  - Neutrophil count decreased [Unknown]
  - Lymphadenopathy [Unknown]
  - White blood cell count decreased [Unknown]
  - Vitamin B12 decreased [Unknown]
  - Weight decreased [Recovered/Resolved]
  - Alanine aminotransferase increased [Unknown]
  - White blood cell count decreased [Not Recovered/Not Resolved]
  - Neutropenia [Unknown]

NARRATIVE: CASE EVENT DATE: 2018
